FAERS Safety Report 8412870-0 (Version None)
Quarter: 2012Q2

REPORT INFORMATION
  Report Type: 
  Country: None (occurrence: None)
  Receive Date: 20120605
  Receipt Date: 20120524
  Transmission Date: 20120825
  Serious: No
  Sender: FDA-Public Use
  Company Number: US-AMGEN-USASP2012032875

PATIENT
  Age: 53 Year
  Sex: Male

DRUGS (2)
  1. ENBREL [Suspect]
     Indication: RHEUMATOID ARTHRITIS
     Dosage: 50 MG, QWK
     Dates: start: 20111006
  2. TREXALL [Concomitant]
     Dosage: 1 MG, UNK
     Dates: start: 20110701

REACTIONS (4)
  - JOINT EFFUSION [None]
  - RHEUMATOID ARTHRITIS [None]
  - OSTEOARTHRITIS [None]
  - HYPOAESTHESIA [None]
